FAERS Safety Report 19642729 (Version 1)
Quarter: 2021Q3

REPORT INFORMATION
  Report Type: Spontaneous
  Country: US (occurrence: US)
  Receive Date: 20210730
  Receipt Date: 20210730
  Transmission Date: 20211014
  Serious: No
  Sender: FDA-Public Use
  Company Number: US-JNJFOC-20210750727

PATIENT

DRUGS (1)
  1. ROGAINE [Suspect]
     Active Substance: MINOXIDIL
     Indication: PRODUCT USED FOR UNKNOWN INDICATION
     Dosage: FREQUENCY? PRODUCT WAS USED OCCASIONALLY AND NOW REGULARLY.
     Route: 065
     Dates: start: 202010

REACTIONS (2)
  - Product formulation issue [Unknown]
  - Inappropriate schedule of product administration [Unknown]
